FAERS Safety Report 5423268-1 (Version None)
Quarter: 2007Q3

REPORT INFORMATION
  Report Type: 
  Country: None (occurrence: None)
  Receive Date: 20070730
  Receipt Date: 20070207
  Transmission Date: 20080115
  Serious: Yes (Hospitalization, Other)
  Sender: FDA-Public Use
  Company Number: 200710324BWH

PATIENT
  Age: 44 Year
  Sex: Female

DRUGS (2)
  1. AVELOX [Suspect]
     Indication: PNEUMONIA
     Dosage: 400 MG, ONCE, ORAL      ORAL
     Route: 048
     Dates: start: 20060119, end: 20060126
  2. AVELOX [Suspect]
     Indication: PNEUMONIA
     Dosage: 400 MG, ONCE, ORAL      ORAL
     Route: 048
     Dates: start: 20041101

REACTIONS (2)
  - ANAPHYLACTIC REACTION [None]
  - ASTHENIA [None]
